FAERS Safety Report 8839436 (Version 1)
Quarter: 2012Q4

REPORT INFORMATION
  Report Type: Spontaneous
  Country: US (occurrence: None)
  Receive Date: 20121012
  Receipt Date: 20121012
  Transmission Date: 20130627
  Serious: Yes (Other)
  Sender: FDA-Public Use
  Company Number: None

PATIENT
  Age: 49 Year
  Sex: Male
  Weight: 210.92 kg

DRUGS (3)
  1. OMNIPAQUE [Suspect]
  2. KENALOG [Suspect]
  3. STEROID [Concomitant]

REACTIONS (3)
  - Pyrexia [None]
  - Headache [None]
  - Loss of consciousness [None]
